FAERS Safety Report 7204617-0 (Version None)
Quarter: 2010Q4

REPORT INFORMATION
  Report Type: 
  Country: None (occurrence: None)
  Receive Date: 20101230
  Receipt Date: 20101220
  Transmission Date: 20110411
  Serious: Yes (Hospitalization, Disabling)
  Sender: FDA-Public Use
  Company Number: US-MERCK-1012USA03129

PATIENT
  Age: 57 Year
  Sex: Female
  Weight: 145 kg

DRUGS (23)
  1. DECADRON [Suspect]
     Indication: MULTIPLE MYELOMA
     Route: 048
     Dates: start: 20100203
  2. DECADRON [Suspect]
     Route: 048
     Dates: start: 20100101
  3. REVLIMID [Suspect]
     Indication: MULTIPLE MYELOMA
     Route: 048
     Dates: start: 20100208
  4. REVLIMID [Suspect]
     Route: 048
     Dates: start: 20100224
  5. REVLIMID [Suspect]
     Route: 048
     Dates: start: 20100326
  6. REVLIMID [Suspect]
     Route: 048
     Dates: start: 20100421, end: 20100512
  7. VELCADE [Suspect]
     Indication: MULTIPLE MYELOMA
     Route: 065
     Dates: start: 20100203, end: 20100428
  8. PAXIL CR [Concomitant]
     Route: 048
  9. ALLEGRA [Concomitant]
     Route: 048
  10. ASACOL [Concomitant]
     Route: 048
  11. IMURAN [Concomitant]
     Route: 048
  12. ZETIA [Concomitant]
     Route: 048
  13. VESICARE [Concomitant]
     Route: 048
  14. ASPIRIN [Concomitant]
     Route: 065
  15. CALCITRIOL [Concomitant]
     Route: 048
  16. OMEPRAZOLE [Concomitant]
     Route: 048
  17. CULTURELLE [Concomitant]
     Route: 048
  18. ACTIGALL [Concomitant]
     Route: 048
  19. CYCLOSPORINE [Concomitant]
     Route: 048
  20. PREDNISOLONE [Concomitant]
     Route: 047
  21. AREDIA [Concomitant]
     Route: 065
     Dates: start: 20100101
  22. TETRAHYDROZOLINE HYDROCHLORIDE [Concomitant]
     Route: 047
  23. IMODIUM [Concomitant]
     Indication: DIARRHOEA
     Route: 065
     Dates: start: 20100101

REACTIONS (9)
  - ANXIETY [None]
  - CONJUNCTIVITIS [None]
  - CONSTIPATION [None]
  - DIARRHOEA [None]
  - INSOMNIA [None]
  - NEUROPATHY PERIPHERAL [None]
  - PNEUMONIA [None]
  - RASH [None]
  - URINARY TRACT INFECTION [None]
